FAERS Safety Report 5740634-5 (Version None)
Quarter: 2008Q2

REPORT INFORMATION
  Report Type: 
  Country: None (occurrence: None)
  Receive Date: 20080516
  Receipt Date: 20080512
  Transmission Date: 20081010
  Serious: Yes (Other)
  Sender: FDA-Public Use
  Company Number: B0518490A

PATIENT
  Age: 21 Year
  Sex: Female

DRUGS (1)
  1. VENTOLIN [Suspect]
     Dosage: 10U PER DAY
     Route: 055

REACTIONS (5)
  - DRUG ABUSE [None]
  - DRUG INEFFECTIVE [None]
  - DRY MOUTH [None]
  - PAROSMIA [None]
  - PHARMACEUTICAL PRODUCT COMPLAINT [None]
